FAERS Safety Report 22539102 (Version 1)
Quarter: 2023Q2

REPORT INFORMATION
  Report Type: Spontaneous
  Country: US (occurrence: US)
  Receive Date: 20230609
  Receipt Date: 20230609
  Transmission Date: 20230722
  Serious: Yes (Other)
  Sender: FDA-Public Use
  Company Number: US-AUROBINDO-AUR-APL-2023-040364

PATIENT
  Age: 60 Year
  Sex: Female

DRUGS (3)
  1. CAPECITABINE [Suspect]
     Active Substance: CAPECITABINE
     Indication: Triple negative breast cancer
     Dosage: 1250 MG/ ON DAYS 1?14 EVERY 3 WEEKS (2 CYCLES)
  2. DOXORUBICIN [Concomitant]
     Active Substance: DOXORUBICIN
     Indication: Neoadjuvant therapy
     Dosage: UNK
     Route: 065
  3. CYCLOPHOSPHAMIDE [Concomitant]
     Active Substance: CYCLOPHOSPHAMIDE
     Indication: Neoadjuvant therapy
     Dosage: UNK
     Route: 065

REACTIONS (1)
  - Dermatomyositis [Recovered/Resolved]
